FAERS Safety Report 8540988-0 (Version None)
Quarter: 2012Q3

REPORT INFORMATION
  Report Type: 
  Country: None (occurrence: None)
  Receive Date: 20120726
  Receipt Date: 20110811
  Transmission Date: 20120928
  Serious: No
  Sender: FDA-Public Use
  Company Number: US-ASTRAZENECA-2011SE48438

PATIENT
  Sex: Female

DRUGS (2)
  1. KLONAPIN [Concomitant]
  2. SEROQUEL [Suspect]
     Indication: HALLUCINATION
     Route: 048

REACTIONS (2)
  - THERAPEUTIC RESPONSE UNEXPECTED [None]
  - WRONG TECHNIQUE IN DRUG USAGE PROCESS [None]
